FAERS Safety Report 11306310 (Version 6)
Quarter: 2015Q4

REPORT INFORMATION
  Report Type: Report from Study
  Country: AU (occurrence: AU)
  Receive Date: 20150723
  Receipt Date: 20151105
  Transmission Date: 20160304
  Serious: Yes (Life-Threatening, Hospitalization, Disabling, Other)
  Sender: FDA-Public Use
  Company Number: AU-EXELIXIS-XL18415005574

PATIENT
  Age: 68 Year
  Sex: Male
  Weight: 87 kg

DRUGS (9)
  1. BLINDED XL184 [Suspect]
     Active Substance: CABOZANTINIB
     Indication: MEDULLARY THYROID CANCER
     Dosage: UNK UNK, QD
     Route: 048
     Dates: start: 20150701, end: 20150718
  2. PANTOPRAZOLE [Concomitant]
     Active Substance: PANTOPRAZOLE SODIUM
  3. AVAPRO [Concomitant]
     Active Substance: IRBESARTAN
  4. THYROXINE [Concomitant]
     Active Substance: LEVOTHYROXINE
  5. LIGNOCAINE [Concomitant]
     Active Substance: LIDOCAINE HYDROCHLORIDE
  6. BLINDED XL184 [Suspect]
     Active Substance: CABOZANTINIB
     Indication: MEDULLARY THYROID CANCER
     Dosage: UNK UNK, QD
     Route: 048
     Dates: start: 20150701, end: 20150718
  7. COLOXYL WITH SENNA [Concomitant]
     Active Substance: DOCUSATE\SENNOSIDES
  8. PANADOL [Concomitant]
     Active Substance: ACETAMINOPHEN
  9. IBUPROFEN. [Concomitant]
     Active Substance: IBUPROFEN

REACTIONS (6)
  - Stomatitis [Recovered/Resolved with Sequelae]
  - Thrombocytopenia [Recovered/Resolved]
  - Sepsis [Recovered/Resolved]
  - Hypoalbuminaemia [Recovered/Resolved]
  - Pneumonia pneumococcal [Recovered/Resolved]
  - Spinal fracture [Not Recovered/Not Resolved]

NARRATIVE: CASE EVENT DATE: 20150720
